FAERS Safety Report 9606244 (Version 1)
Quarter: 2013Q4

REPORT INFORMATION
  Report Type: Spontaneous
  Country: US (occurrence: US)
  Receive Date: 20131008
  Receipt Date: 20131008
  Transmission Date: 20140711
  Serious: No
  Sender: FDA-Public Use
  Company Number: US-AMGEN-USASP2013047234

PATIENT
  Sex: 0

DRUGS (2)
  1. PROLIA [Suspect]
     Indication: PRODUCT USED FOR UNKNOWN INDICATION
  2. PROLIA [Suspect]

REACTIONS (7)
  - Gastrointestinal disorder [Unknown]
  - Gastrooesophageal reflux disease [Unknown]
  - Neck pain [Unknown]
  - Back pain [Unknown]
  - Oral discomfort [Unknown]
  - Muscle spasms [Unknown]
  - Pain in extremity [Unknown]
